FAERS Safety Report 24270214 (Version 1)
Quarter: 2024Q3

REPORT INFORMATION
  Report Type: Spontaneous
  Country: US (occurrence: US)
  Receive Date: 20240830
  Receipt Date: 20240830
  Transmission Date: 20241017
  Serious: Yes (Other)
  Sender: SUNOVION
  Company Number: US-SMPA-2024SPA001937AA

PATIENT

DRUGS (1)
  1. GEMTESA [Suspect]
     Active Substance: VIBEGRON
     Indication: Hypertonic bladder
     Route: 048

REACTIONS (9)
  - Lupus-like syndrome [Unknown]
  - Liver disorder [Unknown]
  - Dehydration [Unknown]
  - Illness [Unknown]
  - Tumour marker abnormal [Unknown]
  - Urinary incontinence [Unknown]
  - Diarrhoea [Unknown]
  - Rash [Unknown]
  - Constipation [Unknown]
